FAERS Safety Report 9990269 (Version 1)
Quarter: 2014Q1

REPORT INFORMATION
  Report Type: Report from Study
  Country: US (occurrence: US)
  Receive Date: 20140310
  Receipt Date: 20140310
  Transmission Date: 20141002
  Serious: No
  Sender: FDA-Public Use
  Company Number: US-ABBVIE-13P-163-1130851-00

PATIENT
  Age: 56 Year
  Sex: Female

DRUGS (14)
  1. WELLBUTRIN XR [Concomitant]
     Indication: PRODUCT USED FOR UNKNOWN INDICATION
  2. FOLIC ACID [Concomitant]
     Indication: PRODUCT USED FOR UNKNOWN INDICATION
     Dosage: I THINK 1MG
  3. ESTROGEN [Concomitant]
     Indication: PRODUCT USED FOR UNKNOWN INDICATION
  4. LOSARTAN / HYDROCHLOROTHIAZID STADA [Concomitant]
     Indication: BLOOD PRESSURE
     Dosage: 100/25MG
  5. CYMBALTA [Concomitant]
     Indication: PRODUCT USED FOR UNKNOWN INDICATION
  6. HUMIRA [Suspect]
     Indication: RHEUMATOID ARTHRITIS
     Dates: start: 20130723
  7. METHOTREXATE [Concomitant]
     Indication: PRODUCT USED FOR UNKNOWN INDICATION
     Dosage: SHOTS
  8. OPANA ER [Concomitant]
     Indication: PRODUCT USED FOR UNKNOWN INDICATION
  9. SALOGEN (FELOCARPINE) [Concomitant]
     Indication: PRODUCT USED FOR UNKNOWN INDICATION
     Dosage: UP TO 4 TIMES DAILY
  10. NIACIN [Concomitant]
     Indication: PRODUCT USED FOR UNKNOWN INDICATION
  11. LEVOTHYROXINE [Concomitant]
     Indication: PRODUCT USED FOR UNKNOWN INDICATION
     Dosage: EVERY MORNING
  12. PERCOCET [Concomitant]
     Indication: PRODUCT USED FOR UNKNOWN INDICATION
     Dosage: 10/325MG
  13. DILTIAZEM [Concomitant]
     Indication: DYSPHAGIA
  14. DILTIAZEM [Concomitant]
     Indication: OESOPHAGEAL DISORDER

REACTIONS (1)
  - Injection site pain [Recovered/Resolved]
